FAERS Safety Report 14419846 (Version 1)
Quarter: 2018Q1

REPORT INFORMATION
  Report Type: Spontaneous
  Country: US (occurrence: US)
  Receive Date: 20180121
  Receipt Date: 20180121
  Transmission Date: 20180509
  Serious: No
  Sender: FDA-Public Use
  Company Number: None

PATIENT
  Age: 23 Year
  Sex: Female
  Weight: 63 kg

DRUGS (3)
  1. CYMBALTA [Concomitant]
     Active Substance: DULOXETINE HYDROCHLORIDE
  2. DULOXETINE HYDROCHLORIDE. [Suspect]
     Active Substance: DULOXETINE HYDROCHLORIDE
     Indication: DEPRESSION
     Dosage: ?          QUANTITY:2 CAPSULE(S);?
     Route: 048
     Dates: start: 20170901, end: 20180121
  3. VITAMIN B12 [Concomitant]
     Active Substance: CYANOCOBALAMIN

REACTIONS (12)
  - Scratch [None]
  - Night sweats [None]
  - Discomfort [None]
  - Feeling abnormal [None]
  - Pruritus generalised [None]
  - Withdrawal syndrome [None]
  - Drug dose omission [None]
  - Paraesthesia [None]
  - Feeling cold [None]
  - Middle insomnia [None]
  - Contusion [None]
  - Dry mouth [None]

NARRATIVE: CASE EVENT DATE: 20180121
